FAERS Safety Report 9293347 (Version 2)
Quarter: 2013Q3

REPORT INFORMATION
  Report Type: Spontaneous
  Country: DE (occurrence: DE)
  Receive Date: 20130516
  Receipt Date: 20130729
  Transmission Date: 20140515
  Serious: Yes (Life-Threatening)
  Sender: FDA-Public Use
  Company Number: DE-JNJFOC-20130506438

PATIENT
  Age: 25 Year
  Sex: Female
  Weight: 150 kg

DRUGS (5)
  1. XARELTO [Suspect]
     Indication: EMBOLISM VENOUS
     Route: 048
     Dates: start: 20130427, end: 20130428
  2. XARELTO [Suspect]
     Indication: EMBOLISM VENOUS
     Route: 048
     Dates: start: 20130422, end: 20130426
  3. XARELTO [Suspect]
     Indication: DEEP VEIN THROMBOSIS
     Route: 048
     Dates: start: 20130427, end: 20130428
  4. XARELTO [Suspect]
     Indication: DEEP VEIN THROMBOSIS
     Route: 048
     Dates: start: 20130422, end: 20130426
  5. CLEXANE [Concomitant]
     Route: 065
     Dates: start: 20130429

REACTIONS (2)
  - Shock haemorrhagic [Recovered/Resolved]
  - Menorrhagia [Recovered/Resolved]
